FAERS Safety Report 8791380 (Version 1)
Quarter: 2012Q4

REPORT INFORMATION
  Report Type: Spontaneous
  Country: US (occurrence: None)
  Receive Date: 20120914
  Receipt Date: 20120914
  Transmission Date: 20130627
  Serious: Yes (Hospitalization)
  Sender: FDA-Public Use
  Company Number: None

PATIENT
  Sex: Female
  Weight: 93.5 kg

DRUGS (6)
  1. METHYLPREDNISOLONE [Suspect]
     Dosage: methyl
     Route: 048
  2. UNSPECIFIED INGREDIENT [Suspect]
  3. VINCRISTINE SULFATE [Suspect]
     Route: 042
  4. ALLOPURINOL [Suspect]
     Route: 048
  5. DAUNORUBICIN [Suspect]
     Route: 042
  6. METHOTREXATE [Suspect]

REACTIONS (1)
  - Blood cholesterol increased [None]
